FAERS Safety Report 22723317 (Version 2)
Quarter: 2024Q1

REPORT INFORMATION
  Report Type: Report from Study
  Country: CA (occurrence: CA)
  Receive Date: 20230719
  Receipt Date: 20240108
  Transmission Date: 20240410
  Serious: Yes (Other)
  Sender: FDA-Public Use
  Company Number: CA-JNJFOC-20220224726

PATIENT
  Age: 10 Year
  Sex: Female
  Weight: 34.2 kg

DRUGS (2)
  1. STELARA [Suspect]
     Active Substance: USTEKINUMAB
     Indication: Crohn^s disease
     Dosage: TREATMENT ALSO GIVEN ON 09-JUL-2021
     Route: 058
     Dates: start: 20210701
  2. STELARA [Suspect]
     Active Substance: USTEKINUMAB
     Indication: Psoriasis
     Route: 058
     Dates: end: 202112

REACTIONS (5)
  - Mastoiditis [Unknown]
  - Inflammatory bowel disease [Unknown]
  - Skin fissures [Unknown]
  - Oedema [Unknown]
  - Psoriasis [Unknown]
